FAERS Safety Report 14677208 (Version 1)
Quarter: 2018Q1

REPORT INFORMATION
  Report Type: Spontaneous
  Country: US (occurrence: US)
  Receive Date: 20180323
  Receipt Date: 20180323
  Transmission Date: 20180509
  Serious: Yes (Life-Threatening)
  Sender: FDA-Public Use
  Company Number: None

PATIENT
  Age: 38 Year
  Sex: Female
  Weight: 65.7 kg

DRUGS (6)
  1. AMPYRA 10MG BID [Concomitant]
  2. SINGULAR 10MG DAILY [Concomitant]
  3. LEMTRADA [Suspect]
     Active Substance: ALEMTUZUMAB
     Indication: MULTIPLE SCLEROSIS
     Route: 042
     Dates: start: 20150616, end: 20160622
  4. BACLOFEN 10MG QID [Concomitant]
  5. PROVIGIL 100MG BID [Concomitant]
  6. SYNTHROID 50MCG DAILY [Concomitant]

REACTIONS (1)
  - Platelet count decreased [None]

NARRATIVE: CASE EVENT DATE: 20180322
